FAERS Safety Report 14837860 (Version 1)
Quarter: 2018Q2

REPORT INFORMATION
  Report Type: Spontaneous
  Country: US (occurrence: US)
  Receive Date: 20180502
  Receipt Date: 20180502
  Transmission Date: 20180711
  Serious: No
  Sender: FDA-Public Use
  Company Number: US-SHIRE-US201816421

PATIENT
  Age: 31 Year

DRUGS (1)
  1. LIALDA [Suspect]
     Active Substance: MESALAMINE
     Indication: COLITIS ULCERATIVE
     Dosage: 4 TABLETS 1.2 G DAILY
     Route: 048

REACTIONS (5)
  - Inappropriate schedule of drug administration [Unknown]
  - Dizziness [Unknown]
  - Headache [Unknown]
  - Vertigo [Unknown]
  - Nausea [Unknown]
